FAERS Safety Report 22535266 (Version 1)
Quarter: 2023Q2

REPORT INFORMATION
  Report Type: Spontaneous
  Country: CH (occurrence: CH)
  Receive Date: 20230608
  Receipt Date: 20230608
  Transmission Date: 20230721
  Serious: Yes (Death, Hospitalization, Other)
  Sender: FDA-Public Use
  Company Number: CH-IMMUNOCORE, LTD-2023-IMC-001623

PATIENT

DRUGS (2)
  1. KIMMTRAK [Suspect]
     Active Substance: TEBENTAFUSP-TEBN
     Indication: Metastases to meninges
     Dosage: UNK
     Dates: start: 20230207, end: 20230207
  2. KIMMTRAK [Suspect]
     Active Substance: TEBENTAFUSP-TEBN
     Dosage: UNK, LAST DOSE ( 6)
     Dates: start: 20230314, end: 20230314

REACTIONS (4)
  - Death [Fatal]
  - Metastases to central nervous system [Unknown]
  - Brain oedema [Unknown]
  - Tumour haemorrhage [Unknown]

NARRATIVE: CASE EVENT DATE: 20230328
